FAERS Safety Report 11083491 (Version 1)
Quarter: 2015Q2

REPORT INFORMATION
  Report Type: Spontaneous
  Country: US (occurrence: US)
  Receive Date: 20150501
  Receipt Date: 20150501
  Transmission Date: 20150821
  Serious: No
  Sender: FDA-Public Use
  Company Number: US-ABBVIE-14P-163-1279236-00

PATIENT
  Age: 29 Year
  Sex: Male
  Weight: 81.72 kg

DRUGS (8)
  1. FISH OIL [Concomitant]
     Active Substance: FISH OIL
     Indication: PRODUCT USED FOR UNKNOWN INDICATION
  2. ANDROGEL [Suspect]
     Active Substance: TESTOSTERONE
     Dosage: 4 PUMPS DAILY
     Route: 061
     Dates: start: 201403, end: 201406
  3. ANDROGEL [Suspect]
     Active Substance: TESTOSTERONE
     Indication: PRODUCT USED FOR UNKNOWN INDICATION
     Dosage: 3 PUMPS DAILY
     Dates: start: 201402, end: 201403
  4. LUNESTA [Concomitant]
     Active Substance: ESZOPICLONE
     Indication: PRODUCT USED FOR UNKNOWN INDICATION
  5. MULTIVITAMIN [Concomitant]
     Active Substance: VITAMINS
     Indication: PRODUCT USED FOR UNKNOWN INDICATION
  6. L-ARGININE [Concomitant]
     Active Substance: ARGININE
     Indication: PRODUCT USED FOR UNKNOWN INDICATION
  7. ANDROGEL [Suspect]
     Active Substance: TESTOSTERONE
     Dosage: 5 PUMPS DAILY
     Route: 061
     Dates: start: 201406
  8. VITAMIN E [Concomitant]
     Active Substance: .ALPHA.-TOCOPHEROL
     Indication: PRODUCT USED FOR UNKNOWN INDICATION

REACTIONS (3)
  - Blood testosterone decreased [Recovering/Resolving]
  - Acne [Not Recovered/Not Resolved]
  - Fatigue [Not Recovered/Not Resolved]

NARRATIVE: CASE EVENT DATE: 201402
